FAERS Safety Report 6386748-0 (Version None)
Quarter: 2009Q4

REPORT INFORMATION
  Report Type: 
  Country: None (occurrence: None)
  Receive Date: 20091002
  Receipt Date: 20090924
  Transmission Date: 20100525
  Serious: Yes (Hospitalization)
  Sender: FDA-Public Use
  Company Number: A0808063A

PATIENT
  Age: 58 Year
  Sex: Female

DRUGS (10)
  1. PROMACTA [Suspect]
     Dosage: 25MG PER DAY
     Route: 048
     Dates: start: 20090709, end: 20090909
  2. TYLENOL (CAPLET) [Concomitant]
  3. BENADRYL [Concomitant]
  4. ZANTAC [Concomitant]
  5. PREDNISONE TAB [Concomitant]
  6. RED BLOOD CELLS [Concomitant]
  7. INSULIN [Concomitant]
  8. PLATELETS [Concomitant]
  9. UNKNOWN [Concomitant]
  10. DILAUDID [Concomitant]

REACTIONS (2)
  - DRUG INEFFECTIVE [None]
  - PNEUMONIA [None]
